FAERS Safety Report 18361532 (Version 1)
Quarter: 2020Q4

REPORT INFORMATION
  Report Type: Spontaneous
  Country: IS (occurrence: IS)
  Receive Date: 20201008
  Receipt Date: 20201008
  Transmission Date: 20210114
  Serious: Yes (Other)
  Sender: FDA-Public Use
  Company Number: NVSC2020IS269679

PATIENT
  Sex: Male

DRUGS (2)
  1. ILARIS [Suspect]
     Active Substance: CANAKINUMAB
     Indication: AUTOIMMUNE PERICARDITIS
     Dosage: 150 MG EVERY 2-3 WEEKS
     Route: 065
  2. ILARIS [Suspect]
     Active Substance: CANAKINUMAB
     Dosage: 300 MG EVERY 2-3 WEEKS
     Route: 065

REACTIONS (2)
  - Product use in unapproved indication [Unknown]
  - Pericarditis [Recovered/Resolved]
